FAERS Safety Report 4962685-0 (Version None)
Quarter: 2006Q1

REPORT INFORMATION
  Report Type: 
  Country: None (occurrence: None)
  Receive Date: 20060201
  Receipt Date: 20051025
  Transmission Date: 20060701
  Serious: No
  Sender: FDA-Public Use
  Company Number: 2005PV003998

PATIENT
  Age: 65 Year
  Sex: Female
  Weight: 97.977 kg

DRUGS (6)
  1. BYETTA [Suspect]
     Indication: DIABETES MELLITUS NON-INSULIN-DEPENDENT
     Dosage: 10 MCG;BID;SC
     Route: 058
     Dates: start: 20051006
  2. GLUCOPHAGE [Concomitant]
  3. INDAPAMIDE [Concomitant]
  4. POTASSIUM CHLORIDE [Concomitant]
  5. ASPIRIN [Concomitant]
  6. VITAMIN E [Concomitant]

REACTIONS (1)
  - BLOOD GLUCOSE INCREASED [None]
